FAERS Safety Report 9769299 (Version 1)
Quarter: 2013Q4

REPORT INFORMATION
  Report Type: Spontaneous
  Country: US (occurrence: None)
  Receive Date: 20131205
  Receipt Date: 20131205
  Transmission Date: 20140711
  Serious: Yes (Hospitalization)
  Sender: FDA-Public Use
  Company Number: 44653

PATIENT
  Age: 63 Year
  Sex: Male

DRUGS (2)
  1. GLASSIA (ALPHA-PROTEINASE INHIBITOR (HUMAN)) KAMADA [Suspect]
     Indication: ALPHA-1 ANTI-TRYPSIN DEFICIENCY
  2. OXYGEN THERAPY [Concomitant]

REACTIONS (4)
  - Lung neoplasm malignant [None]
  - Pneumothorax [None]
  - Pneumonia [None]
  - Pneumothorax spontaneous [None]
